FAERS Safety Report 8348918-1 (Version None)
Quarter: 2012Q2

REPORT INFORMATION
  Report Type: 
  Country: None (occurrence: None)
  Receive Date: 20120508
  Receipt Date: 20120501
  Transmission Date: 20120825
  Serious: Yes (Other)
  Sender: FDA-Public Use
  Company Number: 2010SP038611

PATIENT
  Age: 48 Year
  Sex: Male

DRUGS (2)
  1. REBETOL [Suspect]
     Indication: HEPATITIS C
     Dosage: 400 MG; BID; PO
     Route: 048
     Dates: start: 20100303, end: 20100818
  2. PEG-INTRON [Suspect]
     Indication: HEPATITIS C
     Dosage: 100 MCG; QW, SC
     Route: 058
     Dates: start: 20100303, end: 20100811

REACTIONS (5)
  - ANAEMIA [None]
  - ENTERITIS INFECTIOUS [None]
  - PALPITATIONS [None]
  - CARDIAC FAILURE [None]
  - DISEASE PROGRESSION [None]
